FAERS Safety Report 19398161 (Version 1)
Quarter: 2021Q2

REPORT INFORMATION
  Report Type: Spontaneous
  Country: US (occurrence: US)
  Receive Date: 20210609
  Receipt Date: 20210609
  Transmission Date: 20210717
  Serious: Yes (Other)
  Sender: FDA-Public Use
  Company Number: None

PATIENT
  Age: 67 Year
  Sex: Male
  Weight: 96.4 kg

DRUGS (2)
  1. DAPTOMYCIN. [Suspect]
     Active Substance: DAPTOMYCIN
     Indication: OSTEOMYELITIS
     Route: 042
     Dates: start: 20210602, end: 20210607
  2. DAPTOMYCIN. [Suspect]
     Active Substance: DAPTOMYCIN
     Indication: ARTHRITIS INFECTIVE
     Route: 042
     Dates: start: 20210602, end: 20210607

REACTIONS (7)
  - Depressed level of consciousness [None]
  - Tremor [None]
  - Lethargy [None]
  - Confusional state [None]
  - Electroencephalogram abnormal [None]
  - Cognitive disorder [None]
  - Muscle twitching [None]

NARRATIVE: CASE EVENT DATE: 20210606
